FAERS Safety Report 6869668-4 (Version None)
Quarter: 2010Q3

REPORT INFORMATION
  Report Type: 
  Country: None (occurrence: None)
  Receive Date: 20100722
  Receipt Date: 20080826
  Transmission Date: 20110219
  Serious: No
  Sender: FDA-Public Use
  Company Number: US-PFIZER INC-2008068090

PATIENT
  Sex: Female
  Weight: 65.9 kg

DRUGS (16)
  1. CHANTIX [Suspect]
     Indication: SMOKING CESSATION THERAPY
     Route: 048
     Dates: start: 20080811
  2. LACTULOSE [Interacting]
     Dates: end: 20080825
  3. ALL OTHER THERAPEUTIC PRODUCTS [Concomitant]
  4. SYNTHROID [Concomitant]
  5. NORVASC [Concomitant]
  6. NEXIUM [Concomitant]
  7. FOLIC ACID [Concomitant]
  8. CELEBREX [Concomitant]
  9. LOVASTIN [Concomitant]
  10. LORAZEPAM [Concomitant]
  11. OTHER HYPNOTICS AND SEDATIVES [Concomitant]
  12. MIRTAZAPINE [Concomitant]
  13. DICYCLOMINE [Concomitant]
  14. ZYRTEC [Concomitant]
  15. LEVOXYL [Concomitant]
  16. DRUG, UNSPECIFIED [Concomitant]

REACTIONS (7)
  - CONFUSIONAL STATE [None]
  - DIARRHOEA [None]
  - DRUG INTERACTION [None]
  - DYSPNOEA [None]
  - FATIGUE [None]
  - INAPPROPRIATE SCHEDULE OF DRUG ADMINISTRATION [None]
  - NAUSEA [None]
